FAERS Safety Report 7198137-X (Version None)
Quarter: 2010Q4

REPORT INFORMATION
  Report Type: 
  Country: None (occurrence: None)
  Receive Date: 20101227
  Receipt Date: 20101220
  Transmission Date: 20110411
  Serious: Yes (Hospitalization)
  Sender: FDA-Public Use
  Company Number: US-NOVOPROD-320377

PATIENT
  Age: 66 Year
  Sex: Female
  Weight: 102.4 kg

DRUGS (12)
  1. NOVOLOG [Suspect]
     Indication: TYPE 2 DIABETES MELLITUS
     Dosage: UNK
     Route: 058
     Dates: start: 20071113
  2. APO-PREDNISONE [Concomitant]
     Indication: TEMPORAL ARTERITIS
     Dosage: 10 MG, BID
  3. APO-PREDNISONE [Concomitant]
     Indication: POLYMYALGIA RHEUMATICA
  4. ASPIRIN [Concomitant]
     Indication: PROPHYLAXIS
     Dosage: 81 MG, QD
  5. ATENOLOL [Concomitant]
     Indication: HEART RATE IRREGULAR
     Dosage: 25 MG, BID
  6. GLIPIZIDE [Concomitant]
     Indication: TYPE 2 DIABETES MELLITUS
     Dosage: 10 MG, BID
  7. FUROSEMIDE [Concomitant]
     Indication: FLUID RETENTION
     Dosage: 40 MG, QD
  8. ENALAPRIL MALEATE [Concomitant]
     Indication: BLOOD PRESSURE
     Dosage: 20 MG, QD
  9. LANSOPRAZOLE [Concomitant]
     Indication: GASTROOESOPHAGEAL REFLUX DISEASE
     Dosage: 30 MG, BID
  10. LEVOTHYROXINE [Concomitant]
     Indication: THYROID CANCER
     Dosage: UNK
  11. LOVASTATIN [Concomitant]
     Indication: BLOOD CHOLESTEROL
     Dosage: 80 MG, QD
  12. POTASSIUM [Concomitant]
     Indication: PRODUCT USED FOR UNKNOWN INDICATION
     Dosage: 10 MEQ, QD

REACTIONS (2)
  - BLOOD GLUCOSE DECREASED [None]
  - TRANSIENT ISCHAEMIC ATTACK [None]
